FAERS Safety Report 8056924-X (Version None)
Quarter: 2012Q1

REPORT INFORMATION
  Report Type: 
  Country: None (occurrence: None)
  Receive Date: 20120119
  Receipt Date: 20120111
  Transmission Date: 20120608
  Serious: Yes (Life-Threatening, Hospitalization, Other)
  Sender: FDA-Public Use
  Company Number: US-ACTELION-A-US2011-56130

PATIENT

DRUGS (2)
  1. TRACLEER [Suspect]
     Indication: PULMONARY ARTERIAL HYPERTENSION
     Dosage: UNK MG, UNK
     Route: 048
     Dates: start: 20110304, end: 20111001
  2. REVATIO [Concomitant]

REACTIONS (7)
  - TRANSFUSION [None]
  - HEPATIC CIRRHOSIS [None]
  - HEPATIC ENZYME [None]
  - ULCER HAEMORRHAGE [None]
  - MALAISE [None]
  - HEPATIC CONGESTION [None]
  - RIGHT VENTRICULAR FAILURE [None]
